FAERS Safety Report 17890533 (Version 2)
Quarter: 2020Q3

REPORT INFORMATION
  Report Type: Report from Study
  Country: CO (occurrence: CO)
  Receive Date: 20200612
  Receipt Date: 20200701
  Transmission Date: 20201103
  Serious: Yes (Death, Hospitalization, Other)
  Sender: FDA-Public Use
  Company Number: CO-ASTELLAS-2019US034264

PATIENT
  Age: 67 Year
  Sex: Male
  Weight: 167 kg

DRUGS (8)
  1. TACROLIMUS. [Suspect]
     Active Substance: TACROLIMUS
     Route: 048
     Dates: start: 20190902
  2. TACROLIMUS. [Suspect]
     Active Substance: TACROLIMUS
     Route: 048
     Dates: start: 201910, end: 201910
  3. TACROLIMUS. [Suspect]
     Active Substance: TACROLIMUS
     Dosage: 7 MG (1 CAPSULE OF 5 MG AND 2 CAPSULES OF 1 MG), ONCE DAILY
     Route: 048
     Dates: start: 20191012
  4. TACROLIMUS. [Suspect]
     Active Substance: TACROLIMUS
     Dosage: 5 MG, ONCE DAILY ONE CAPSULE OF 5 MG
     Route: 048
     Dates: start: 20190813, end: 20190901
  5. METOPROLOL. [Concomitant]
     Active Substance: METOPROLOL
     Indication: PRODUCT USED FOR UNKNOWN INDICATION
     Dosage: 50 MG, TWICE DAILY (1 AT MORNING AND 1 AT EVENING)
     Route: 048
  6. PREDNISOLONE. [Concomitant]
     Active Substance: PREDNISOLONE
     Indication: PRODUCT USED FOR UNKNOWN INDICATION
     Route: 048
  7. TACROLIMUS. [Suspect]
     Active Substance: TACROLIMUS
     Indication: RENAL TRANSPLANT
     Dosage: 7 MG (1 CAPSULE OF 5 MG AND 2 CAPSULE OF 1 MG), ONCE DAILY
     Route: 048
     Dates: start: 20171012, end: 20190812
  8. MYCOPHENOLATE [Concomitant]
     Active Substance: MYCOPHENOLIC ACID
     Indication: PRODUCT USED FOR UNKNOWN INDICATION
     Route: 048

REACTIONS (11)
  - Immunosuppressant drug level increased [Unknown]
  - Infection [Unknown]
  - Spinal cord injury [Unknown]
  - Blood creatinine increased [Recovering/Resolving]
  - Herpes virus infection [Unknown]
  - Spinal cord infection [Unknown]
  - Herpes zoster [Recovering/Resolving]
  - Kidney transplant rejection [Recovering/Resolving]
  - Secondary immunodeficiency [Unknown]
  - Death [Fatal]
  - Lower respiratory tract infection fungal [Recovering/Resolving]

NARRATIVE: CASE EVENT DATE: 2018
